FAERS Safety Report 18155696 (Version 1)
Quarter: 2020Q3

REPORT INFORMATION
  Report Type: Spontaneous
  Country: US (occurrence: US)
  Receive Date: 20200814
  Receipt Date: 20200814
  Transmission Date: 20201103
  Serious: Yes (Life-Threatening)
  Sender: FDA-Public Use
  Company Number: None

PATIENT
  Age: 52 Year
  Sex: Female
  Weight: 95.7 kg

DRUGS (1)
  1. NEOSTIGMINE. [Suspect]
     Active Substance: NEOSTIGMINE METHYLSULFATE
     Indication: INTESTINAL PSEUDO-OBSTRUCTION
     Route: 040
     Dates: start: 20200801, end: 20200801

REACTIONS (5)
  - Pulseless electrical activity [None]
  - Dizziness [None]
  - Arrhythmia [None]
  - Bradycardia [None]
  - Drug hypersensitivity [None]

NARRATIVE: CASE EVENT DATE: 20200801
